FAERS Safety Report 24354733 (Version 1)
Quarter: 2024Q3

REPORT INFORMATION
  Report Type: Spontaneous
  Country: US (occurrence: US)
  Receive Date: 20240923
  Receipt Date: 20240923
  Transmission Date: 20241016
  Serious: No
  Sender: BRISTOL MYERS SQUIBB
  Company Number: US-BRISTOL-MYERS SQUIBB COMPANY-2024-149474

PATIENT
  Age: 70 Year
  Sex: Male

DRUGS (1)
  1. LENALIDOMIDE [Suspect]
     Active Substance: LENALIDOMIDE
     Indication: Plasma cell myeloma
     Dosage: AFTER HEMODIALYSIS FOR 21 DAYS OF EACH 35 DAY CYCLE
     Route: 048

REACTIONS (3)
  - Therapy interrupted [Unknown]
  - Product prescribing issue [Unknown]
  - Off label use [Unknown]
